FAERS Safety Report 13719815 (Version 1)
Quarter: 2017Q3

REPORT INFORMATION
  Report Type: Spontaneous
  Country: None (occurrence: US)
  Receive Date: 20170705
  Receipt Date: 20170705
  Transmission Date: 20171127
  Serious: No
  Sender: FDA-Public Use
  Company Number: US-CUMBERLAND PHARMACEUTICALS INC.-2022966

PATIENT
  Age: 5 Decade
  Sex: Male

DRUGS (2)
  1. CALDOLOR [Suspect]
     Active Substance: IBUPROFEN
     Indication: PAIN
     Route: 042
  2. ANCEF [Concomitant]
     Active Substance: CEFAZOLIN SODIUM

REACTIONS (1)
  - Administration site phlebitis [Recovered/Resolved]
